FAERS Safety Report 19014282 (Version 1)
Quarter: 2021Q1

REPORT INFORMATION
  Report Type: Spontaneous
  Country: DE (occurrence: DE)
  Receive Date: 20210316
  Receipt Date: 20210316
  Transmission Date: 20210420
  Serious: Yes (Hospitalization)
  Sender: FDA-Public Use
  Company Number: DE-JNJFOC-20210325884

PATIENT
  Age: 66 Year
  Sex: Male

DRUGS (1)
  1. RIVAROXABAN [Suspect]
     Active Substance: RIVAROXABAN
     Indication: VENOUS THROMBOSIS
     Dosage: 20 MG, QD
     Route: 048

REACTIONS (4)
  - Drug ineffective [Unknown]
  - Acute myocardial infarction [Unknown]
  - Endocarditis noninfective [Unknown]
  - International normalised ratio increased [Unknown]
